FAERS Safety Report 5278971-3 (Version None)
Quarter: 2007Q1

REPORT INFORMATION
  Report Type: 
  Country: None (occurrence: None)
  Receive Date: 20070328
  Receipt Date: 20061117
  Transmission Date: 20070707
  Serious: No
  Sender: FDA-Public Use
  Company Number: US-AMGEN-KDL200643

PATIENT
  Age: 64 Year
  Sex: Female

DRUGS (7)
  1. NEULASTA [Suspect]
     Indication: CHEMOTHERAPY
     Route: 058
     Dates: start: 20061001
  2. DICLOFENAC SODIUM [Concomitant]
  3. CYCLOPHOSPHAMIDE [Concomitant]
     Dates: start: 20061001
  4. DOXORUBICIN HYDROCHLORIDE [Concomitant]
     Dates: start: 20061001
  5. VINCRISTINE [Concomitant]
     Dates: start: 20061001
  6. PREDNISONE [Concomitant]
     Dates: start: 20061001
  7. RITUXAN [Concomitant]
     Dates: start: 20061001

REACTIONS (3)
  - BACK PAIN [None]
  - INSOMNIA [None]
  - PAIN OF SKIN [None]
